FAERS Safety Report 11131162 (Version 1)
Quarter: 2015Q2

REPORT INFORMATION
  Report Type: Spontaneous
  Country: FR (occurrence: FR)
  Receive Date: 20150522
  Receipt Date: 20150522
  Transmission Date: 20150821
  Serious: Yes (Death)
  Sender: FDA-Public Use
  Company Number: FR-MERCK-1505FRA004845

PATIENT
  Age: 64 Year
  Sex: Female

DRUGS (8)
  1. CLOPIXOL SEMI PROLONGEE [Suspect]
     Active Substance: ZUCLOPENTHIXOL ACETATE
     Indication: PSYCHOTIC DISORDER
     Dosage: 50 MG, QD
     Route: 030
     Dates: start: 20150108, end: 20150108
  2. PIPORTIL L4 [Suspect]
     Active Substance: PIPOTIAZINE PALMITATE
     Indication: PSYCHOTIC DISORDER
     Dosage: 50 MG, QD
     Route: 030
     Dates: start: 20141231, end: 20141231
  3. PARKINANE RETARD [Suspect]
     Active Substance: TRIHEXYPHENIDYL HYDROCHLORIDE
     Indication: PSYCHOTIC DISORDER
     Dosage: 5 MG, QD
     Route: 048
     Dates: start: 20141220, end: 20150110
  4. NORSET [Suspect]
     Active Substance: MIRTAZAPINE
     Indication: PSYCHOTIC DISORDER
     Dosage: UNK
     Route: 048
     Dates: start: 20150106, end: 20150109
  5. LYSANXIA [Suspect]
     Active Substance: PRAZEPAM
     Indication: PSYCHOTIC DISORDER
     Dosage: 80 DROPS DAILY
     Route: 048
     Dates: start: 20150105, end: 20150110
  6. URIDOZ [Suspect]
     Active Substance: FOSFOMYCIN TROMETHAMINE
     Dosage: 1 DF, QD
     Route: 048
     Dates: start: 20150109, end: 20150109
  7. TERCIAN [Suspect]
     Active Substance: CYAMEMAZINE
     Indication: PSYCHOTIC DISORDER
     Dosage: ON 09-JAN-2015 200 DROPS (30 DROPS,FIVE TIMES DAILY)
     Route: 048
     Dates: start: 20141220, end: 20150110
  8. MIANSERIN HYDROCHLORIDE [Suspect]
     Active Substance: MIANSERIN HYDROCHLORIDE
     Indication: PSYCHOTIC DISORDER
     Dosage: 30 MG, QD
     Route: 048
     Dates: start: 20141227, end: 20150106

REACTIONS (1)
  - Death [Fatal]

NARRATIVE: CASE EVENT DATE: 20150110
